FAERS Safety Report 4656799-2 (Version None)
Quarter: 2005Q2

REPORT INFORMATION
  Report Type: 
  Country: None (occurrence: None)
  Receive Date: 20050506
  Receipt Date: 20050422
  Transmission Date: 20051028
  Serious: Yes (Hospitalization)
  Sender: FDA-Public Use
  Company Number: 2005AP02462

PATIENT
  Age: 70 Year
  Sex: Female

DRUGS (1)
  1. XYLOCAINE [Suspect]
     Dates: start: 20050420, end: 20050420

REACTIONS (4)
  - BLOOD PRESSURE INCREASED [None]
  - FALL [None]
  - NAUSEA [None]
  - VOMITING [None]
